FAERS Safety Report 5452989-X (Version None)
Quarter: 2007Q3

REPORT INFORMATION
  Report Type: 
  Country: None (occurrence: None)
  Receive Date: 20070914
  Receipt Date: 20070905
  Transmission Date: 20080115
  Serious: Yes (Other)
  Sender: FDA-Public Use
  Company Number: JP-PFIZER INC-2007051735

PATIENT
  Sex: Female

DRUGS (9)
  1. LIPITOR [Suspect]
     Indication: HYPERLIPIDAEMIA
     Route: 048
     Dates: start: 20070105, end: 20070625
  2. AVELOX [Suspect]
     Indication: PNEUMONIA
     Route: 048
     Dates: start: 20070619, end: 20070626
  3. LOXONIN [Concomitant]
     Indication: PNEUMONIA
     Dates: start: 20070619, end: 20070626
  4. MUCOSTA [Concomitant]
     Indication: PNEUMONIA
     Route: 048
     Dates: start: 20070619, end: 20070626
  5. ALOSENN [Concomitant]
     Route: 048
  6. RABEPRAZOLE SODIUM [Concomitant]
     Route: 048
  7. ASPIRIN [Concomitant]
     Route: 048
  8. EBASTINE [Concomitant]
     Route: 048
  9. WARFARIN SODIUM [Concomitant]
     Route: 048

REACTIONS (3)
  - PNEUMONIA [None]
  - PURPURA [None]
  - PYREXIA [None]
